FAERS Safety Report 6405267-6 (Version None)
Quarter: 2009Q4

REPORT INFORMATION
  Report Type: 
  Country: None (occurrence: None)
  Receive Date: 20091019
  Receipt Date: 20091008
  Transmission Date: 20100525
  Serious: Yes (Other)
  Sender: FDA-Public Use
  Company Number: SE-ASTRAZENECA-2009SE18800

PATIENT
  Age: 17 Year
  Sex: Female

DRUGS (2)
  1. XYLOCAIN SOLUTION [Suspect]
     Indication: HYPERHIDROSIS
     Dosage: 100 MG/FOOT
     Route: 065
     Dates: start: 20090505, end: 20090505
  2. DYSPORT POWDER [Suspect]
     Indication: HYPERHIDROSIS
     Dosage: 250 U/FOOT
     Route: 023
     Dates: start: 20090505, end: 20090505

REACTIONS (3)
  - HYPERAESTHESIA [None]
  - PAIN [None]
  - SENSORY DISTURBANCE [None]
